FAERS Safety Report 15312370 (Version 2)
Quarter: 2018Q3

REPORT INFORMATION
  Report Type: Spontaneous
  Country: US (occurrence: US)
  Receive Date: 20180823
  Receipt Date: 20180829
  Transmission Date: 20181010
  Serious: No
  Sender: FDA-Public Use
  Company Number: US-PFIZER INC-2018336191

PATIENT
  Age: 9 Year
  Sex: Male
  Weight: 39.46 kg

DRUGS (3)
  1. TURMERIC [CURCUMA LONGA RHIZOME] [Concomitant]
     Indication: ANTIINFLAMMATORY THERAPY
     Dosage: UNK
     Dates: start: 20180606
  2. ZIPRASIDONE HCL [Suspect]
     Active Substance: ZIPRASIDONE HYDROCHLORIDE
     Indication: AFFECTIVE DISORDER
     Dosage: 20 MG, 1X/DAY (20 MG, CAPSULE, ORALLY, ONCE A DAY FOR 5 DAYS)
     Route: 048
     Dates: start: 20180814
  3. COLACE [Concomitant]
     Active Substance: DOCUSATE SODIUM
     Indication: CONSTIPATION
     Dosage: UNK
     Dates: start: 201804

REACTIONS (2)
  - Product use issue [Unknown]
  - Sedation [Not Recovered/Not Resolved]

NARRATIVE: CASE EVENT DATE: 20180814
